FAERS Safety Report 5132236-9 (Version None)
Quarter: 2006Q4

REPORT INFORMATION
  Report Type: 
  Country: None (occurrence: None)
  Receive Date: 20061017
  Receipt Date: 20061004
  Transmission Date: 20070319
  Serious: No
  Sender: FDA-Public Use
  Company Number: 06H-163-0310707-00

PATIENT
  Age: 64 Year
  Sex: Female
  Weight: 74.3899 kg

DRUGS (2)
  1. MORPHINE SULFATE INJ [Suspect]
     Indication: PAIN
     Dosage: 6 MG, ONCE AS LOADING DOSE, INTRAVENOUS; 2 MG, EVERY 20 MINUTES AS NEEDED, INTRAVENOUS
     Route: 042
     Dates: start: 20060911, end: 20060911
  2. MORPHINE SULFATE INJ [Suspect]
     Indication: PAIN
     Dosage: 6 MG, ONCE AS LOADING DOSE, INTRAVENOUS; 2 MG, EVERY 20 MINUTES AS NEEDED, INTRAVENOUS
     Route: 042
     Dates: start: 20060911, end: 20060911

REACTIONS (2)
  - DEPRESSED LEVEL OF CONSCIOUSNESS [None]
  - RESPIRATORY RATE DECREASED [None]
